FAERS Safety Report 9036699 (Version 1)
Quarter: 2013Q1

REPORT INFORMATION
  Report Type: Spontaneous
  Country: GB (occurrence: None)
  Receive Date: 20130114
  Receipt Date: 20130114
  Transmission Date: 20140127
  Serious: Yes (Life-Threatening, Hospitalization, Disabling)
  Sender: FDA-Public Use
  Company Number: 2012AP004484

PATIENT
  Age: 84 Year
  Sex: Female

DRUGS (11)
  1. ALENDRONATE (ALENDRONATE SODIUM) [Suspect]
     Indication: OSTEOPOROSIS
     Dates: start: 2098, end: 201212
  2. ASPIRIN (ACETYLSALICYLIC ACID) [Concomitant]
  3. ATENOLOL (ATENOLOL) [Concomitant]
  4. FERROUS FUMARATE (FERROUS FUMARATE) [Concomitant]
  5. FUROSEMIDE (FUROSEMIDE) [Concomitant]
  6. GLICLAZIDE (GLICLAZIDE) [Concomitant]
  7. LOSARTAN (LOSARTAN) [Concomitant]
  8. METFORMIN (METFORMIN) [Concomitant]
  9. OMEPRAZOLE (OMEPRAZOLE) [Concomitant]
  10. PREDNISOLONE (PREDNISOLONE) [Concomitant]
  11. SIMVASTATIN (SIMVASTATIN) [Concomitant]

REACTIONS (2)
  - Femur fracture [None]
  - Femur fracture [None]
